FAERS Safety Report 7801313-3 (Version None)
Quarter: 2011Q4

REPORT INFORMATION
  Report Type: 
  Country: None (occurrence: None)
  Receive Date: 20111005
  Receipt Date: 20110926
  Transmission Date: 20120403
  Serious: Yes (Hospitalization, Other)
  Sender: FDA-Public Use
  Company Number: AUR-APL-2011-05188

PATIENT
  Age: 9 Year
  Sex: Female

DRUGS (8)
  1. PREDNISONE TAB [Suspect]
     Indication: ASTHMA
     Dosage: (60 MG),
  2. FLUTICASONE PROPIONATE [Suspect]
     Indication: ASTHMA
     Dosage: 110 UG/AUCTION 2 PUFF (2 IN 1 D) INHALATION, 220 UG/AUCTION, 2 PUFF (2 IN 1 D), INHALATION
     Route: 055
     Dates: start: 20090630, end: 20090925
  3. FLUTICASONE PROPIONATE [Suspect]
     Indication: ASTHMA
     Dosage: 110 UG/AUCTION 2 PUFF (2 IN 1 D) INHALATION, 220 UG/AUCTION, 2 PUFF (2 IN 1 D), INHALATION
     Route: 055
     Dates: start: 20090602, end: 20090630
  4. DORNASE ALFA (DORINASE ALFA) [Concomitant]
  5. PROPRANOLOL [Concomitant]
  6. AZITHROMYCIN [Concomitant]
  7. FLUCONAZOLE [Suspect]
     Indication: VULVOVAGINAL CANDIDIASIS
     Dosage: (100 MG) ORAL
     Route: 048
  8. ALBUTEROL [Concomitant]

REACTIONS (4)
  - VULVOVAGINAL CANDIDIASIS [None]
  - ADRENAL INSUFFICIENCY [None]
  - CUSHING'S SYNDROME [None]
  - CYSTIC FIBROSIS RELATED DIABETES [None]
